FAERS Safety Report 8875097 (Version 1)
Quarter: 2012Q4

REPORT INFORMATION
  Report Type: 
  Country: US (occurrence: US)
  Receive Date: 20121026
  Receipt Date: 20121026
  Transmission Date: 20130627
  Serious: No
  Sender: FDA-Public Use
  Company Number: US-AMGEN-USASP2012044981

PATIENT
  Age: 51 Year
  Sex: Female

DRUGS (2)
  1. ENBREL [Suspect]
     Indication: RHEUMATOID ARTHRITIS
     Dosage: 50 mg, qwk
     Dates: start: 20060601
  2. METHOTREXATE [Concomitant]
     Dosage: 4 mg, UNK

REACTIONS (7)
  - Allergy to animal [Not Recovered/Not Resolved]
  - Arthritis [Recovered/Resolved]
  - Sinusitis [Not Recovered/Not Resolved]
  - Cystitis [Recovered/Resolved]
  - Hepatic enzyme increased [Recovered/Resolved]
  - Rash erythematous [Not Recovered/Not Resolved]
  - Rash pruritic [Not Recovered/Not Resolved]
